FAERS Safety Report 15848479 (Version 4)
Quarter: 2019Q2

REPORT INFORMATION
  Report Type: Spontaneous
  Country: JP (occurrence: JP)
  Receive Date: 20190121
  Receipt Date: 20190415
  Transmission Date: 20190711
  Serious: Yes (Other)
  Sender: FDA-Public Use
  Company Number: JP-ELI_LILLY_AND_COMPANY-JP201901007994

PATIENT
  Age: 79 Year
  Sex: Female

DRUGS (3)
  1. CISPLATIN. [Suspect]
     Active Substance: CISPLATIN
     Indication: HEAD AND NECK CANCER
     Dosage: UNK, UNKNOWN
     Route: 065
  2. 5 FU [Suspect]
     Active Substance: FLUOROURACIL
     Indication: HEAD AND NECK CANCER
     Dosage: UNK, UNKNOWN
     Route: 065
  3. ERBITUX [Suspect]
     Active Substance: CETUXIMAB
     Indication: HEAD AND NECK CANCER
     Dosage: UNK, UNKNOWN
     Route: 041

REACTIONS (2)
  - Weight increased [Unknown]
  - Oedema [Recovered/Resolved]
